FAERS Safety Report 13209506 (Version 1)
Quarter: 2017Q1

REPORT INFORMATION
  Report Type: Spontaneous
  Country: SE (occurrence: SE)
  Receive Date: 20170209
  Receipt Date: 20170209
  Transmission Date: 20170428
  Serious: Yes (Hospitalization, Other)
  Sender: FDA-Public Use
  Company Number: SE-GLAXOSMITHKLINE-SE2017015564

PATIENT
  Age: 40 Year
  Sex: Male

DRUGS (1)
  1. ZYBAN [Suspect]
     Active Substance: BUPROPION HYDROCHLORIDE
     Indication: SMOKING CESSATION THERAPY
     Dosage: 150 MGX1 FOR 10 DAYS THEN INCREASED DOSE UP TO 300 MG FOR 2 WEEKS
     Route: 065
     Dates: start: 201609, end: 20161020

REACTIONS (2)
  - Acute psychosis [Recovered/Resolved]
  - Sleep disorder [Recovered/Resolved]

NARRATIVE: CASE EVENT DATE: 201609
